FAERS Safety Report 10287848 (Version 1)
Quarter: 2014Q3

REPORT INFORMATION
  Report Type: Spontaneous
  Country: IL (occurrence: IL)
  Receive Date: 20140709
  Receipt Date: 20140709
  Transmission Date: 20150326
  Serious: Yes (Other)
  Sender: FDA-Public Use
  Company Number: IL-WATSON-2014-14890

PATIENT
  Age: 8 Year
  Sex: Female

DRUGS (1)
  1. EMLA [Suspect]
     Active Substance: LIDOCAINE\PRILOCAINE
     Indication: LASER THERAPY
     Dosage: LARGE AMOUNT ON LOWER LIMBS
     Route: 061

REACTIONS (2)
  - Methaemoglobinaemia [Recovered/Resolved]
  - Generalised tonic-clonic seizure [Recovered/Resolved]
